FAERS Safety Report 9228156 (Version 2)
Quarter: 2013Q2

REPORT INFORMATION
  Report Type: Report from Study
  Country: TR (occurrence: TR)
  Receive Date: 20130412
  Receipt Date: 20130624
  Transmission Date: 20140414
  Serious: Yes (Other)
  Sender: FDA-Public Use
  Company Number: TR-ROCHE-1209368

PATIENT
  Age: 153 Day
  Sex: Female
  Weight: 6.2 kg

DRUGS (2)
  1. ALTEPLASE [Suspect]
     Indication: PERIPHERAL ISCHAEMIA
     Dosage: 0.5 MG/KG/HR
     Route: 042
  2. ALTEPLASE [Suspect]
     Indication: OFF LABEL USE

REACTIONS (2)
  - Condition aggravated [Recovered/Resolved]
  - Drug ineffective [Recovered/Resolved]
